FAERS Safety Report 7953929-1 (Version None)
Quarter: 2011Q4

REPORT INFORMATION
  Report Type: 
  Country: None (occurrence: None)
  Receive Date: 20111202
  Receipt Date: 20111122
  Transmission Date: 20120403
  Serious: Yes (Hospitalization)
  Sender: FDA-Public Use
  Company Number: US-BAYER-2011-044930

PATIENT
  Age: 37 Year
  Sex: Female
  Weight: 77.098 kg

DRUGS (5)
  1. YAZ [Suspect]
     Indication: CONTRACEPTION
     Dosage: UNK
     Dates: start: 20060916, end: 20090421
  2. DIURETICS [Concomitant]
     Dosage: UNK
     Dates: start: 20040101, end: 20090101
  3. MAXIDEX [Concomitant]
     Dosage: UNK UNK, PRN
  4. TRIAMTERENE [Concomitant]
     Indication: ABDOMINAL DISTENSION
     Dosage: UNK
     Dates: start: 20000101, end: 20090101
  5. NSAID'S [Concomitant]
     Dosage: UNK UNK, PRN

REACTIONS (9)
  - ANXIETY [None]
  - MUSCLE SPASMS [None]
  - PAIN IN EXTREMITY [None]
  - ANHEDONIA [None]
  - FEAR [None]
  - THROMBOSIS [None]
  - TENDON INJURY [None]
  - PSYCHOLOGICAL TRAUMA [None]
  - PAIN [None]
